FAERS Safety Report 9914552 (Version 1)
Quarter: 2014Q1

REPORT INFORMATION
  Report Type: Spontaneous
  Country: US (occurrence: None)
  Receive Date: 20140218
  Receipt Date: 20140218
  Transmission Date: 20141002
  Serious: Yes (Hospitalization)
  Sender: FDA-Public Use
  Company Number: UCM201402-000015

PATIENT
  Age: 64 Year
  Sex: Female

DRUGS (18)
  1. HYDROCHLOROTHIAZIDE [Suspect]
  2. AMLODIPINE (AMLODIPINE) (AMLODIPINE) [Suspect]
  3. HYDROCODONE - ACETAMINOPHEN [Suspect]
  4. IBUPROFEN [Suspect]
  5. INSULIN (INSULIN) [Suspect]
  6. METFORMIN (METFORMIN) (METFORMIN) [Suspect]
  7. GABAPENTIN (GABAPENTIN) (GABAPENTIN) [Suspect]
  8. LISINOPRIL (LISINOPRIL) (LISINOPRIL) [Suspect]
  9. METOPROLOL (METOPROLOL) (METOPROLOL) [Suspect]
  10. FLUTICASONE (FLUTICASONE) (FLUTICASONE) [Suspect]
  11. IPRATROPIUM [Suspect]
  12. ALBUTEROL (ALBUTEROL) (ALBUTEROL) [Suspect]
  13. MONTELUKAST (MONTELUKAST) (MONTELUKAST) [Suspect]
  14. ROSUVASTATIN [Suspect]
  15. OMEPRAZOLE (OMEPRAZOLE) (OMEPRAZOLE) [Suspect]
  16. RANITIDINE [Suspect]
  17. ONDANSETRON [Suspect]
  18. PROMETHAZINE (PROMETHAZINE) (PROMETHAZINE) [Suspect]

REACTIONS (3)
  - Pemphigus [None]
  - Herpes simplex serology positive [None]
  - Nausea [None]
